FAERS Safety Report 10412951 (Version 3)
Quarter: 2014Q4

REPORT INFORMATION
  Report Type: Spontaneous
  Country: US (occurrence: US)
  Receive Date: 20140827
  Receipt Date: 20141013
  Transmission Date: 20150528
  Serious: Yes (Death, Hospitalization, Other)
  Sender: FDA-Public Use
  Company Number: US-GILEAD-2014-0113198

PATIENT
  Age: 26 Year
  Sex: Male

DRUGS (1)
  1. LETAIRIS [Suspect]
     Active Substance: AMBRISENTAN
     Indication: PULMONARY ARTERIAL HYPERTENSION
     Dosage: 10 MG, QD
     Route: 065
     Dates: start: 20130809

REACTIONS (3)
  - Cardiac failure [Fatal]
  - Dyspnoea [Not Recovered/Not Resolved]
  - Life support [Not Recovered/Not Resolved]

NARRATIVE: CASE EVENT DATE: 20140822
